FAERS Safety Report 13958213 (Version 1)
Quarter: 2017Q3

REPORT INFORMATION
  Report Type: Spontaneous
  Country: US (occurrence: US)
  Receive Date: 20170912
  Receipt Date: 20170912
  Transmission Date: 20171128
  Serious: No
  Sender: FDA-Public Use
  Company Number: US-009507513-1708USA009398

PATIENT

DRUGS (1)
  1. CLARINEX [Suspect]
     Active Substance: DESLORATADINE
     Dosage: UNK
     Route: 048
     Dates: start: 2001, end: 201708

REACTIONS (3)
  - Rhinorrhoea [Unknown]
  - Inappropriate schedule of drug administration [Unknown]
  - Nasal congestion [Unknown]

NARRATIVE: CASE EVENT DATE: 201708
